FAERS Safety Report 19649274 (Version 4)
Quarter: 2021Q4

REPORT INFORMATION
  Report Type: Spontaneous
  Country: FR (occurrence: FR)
  Receive Date: 20210802
  Receipt Date: 20211005
  Transmission Date: 20220303
  Serious: Yes (Disabling, Other)
  Sender: FDA-Public Use
  Company Number: NVSC2021FR141227

PATIENT
  Age: 38 Year
  Sex: Male
  Weight: 72 kg

DRUGS (1)
  1. CIPROFLOXACIN [Suspect]
     Active Substance: CIPROFLOXACIN
     Indication: Urinary tract infection
     Dosage: 500 MG, BID
     Route: 048
     Dates: start: 20180518, end: 20180519

REACTIONS (23)
  - Mastication disorder [Recovered/Resolved]
  - Neuralgia [Recovered/Resolved]
  - Arthralgia [Recovered/Resolved with Sequelae]
  - Myalgia [Recovered/Resolved with Sequelae]
  - Glaucoma [Unknown]
  - Suicidal ideation [Unknown]
  - Tendon pain [Recovered/Resolved with Sequelae]
  - Pain [Unknown]
  - Musculoskeletal stiffness [Unknown]
  - Headache [Recovered/Resolved]
  - Muscular weakness [Unknown]
  - Electric shock sensation [Unknown]
  - Joint noise [Unknown]
  - Photophobia [Recovered/Resolved]
  - Weight decreased [Unknown]
  - Musculoskeletal disorder [Unknown]
  - General physical health deterioration [Unknown]
  - Fibromyalgia [Unknown]
  - Mobility decreased [Recovered/Resolved with Sequelae]
  - Colitis [Unknown]
  - Gait disturbance [Unknown]
  - Accident [Unknown]
  - Otitis externa [Unknown]

NARRATIVE: CASE EVENT DATE: 20180501
